FAERS Safety Report 24807287 (Version 2)
Quarter: 2025Q3

REPORT INFORMATION
  Report Type: Report from Study
  Country: US (occurrence: US)
  Receive Date: 20250105
  Receipt Date: 20250802
  Transmission Date: 20251021
  Serious: Yes (Other)
  Sender: ALEXION PHARMACEUTICALS
  Company Number: US-AstraZeneca-CH-00764263A

PATIENT
  Sex: Female
  Weight: 47.173 kg

DRUGS (1)
  1. OSIMERTINIB [Suspect]
     Active Substance: OSIMERTINIB
     Indication: Lung cancer metastatic
     Dosage: 80 MILLIGRAM, QD
     Dates: start: 20240109

REACTIONS (2)
  - Acquired gene mutation [Unknown]
  - Product dose omission issue [Unknown]
